FAERS Safety Report 13131308 (Version 3)
Quarter: 2017Q1

REPORT INFORMATION
  Report Type: Spontaneous
  Country: CA (occurrence: CA)
  Receive Date: 20170119
  Receipt Date: 20170127
  Transmission Date: 20170428
  Serious: Yes (Other)
  Sender: FDA-Public Use
  Company Number: CA-PFIZER INC-2017007195

PATIENT
  Sex: Female

DRUGS (1)
  1. EPIPEN [Suspect]
     Active Substance: EPINEPHRINE
     Dosage: UNK

REACTIONS (2)
  - Needle issue [Unknown]
  - Drug dose omission [Unknown]
